FAERS Safety Report 9781060 (Version 1)
Quarter: 2013Q4

REPORT INFORMATION
  Report Type: Spontaneous
  Country: US (occurrence: None)
  Receive Date: 20131220
  Receipt Date: 20131220
  Transmission Date: 20140711
  Serious: Yes (Hospitalization)
  Sender: FDA-Public Use
  Company Number: AUR-APL-2013-10533

PATIENT
  Age: 80 Year
  Sex: Male
  Weight: 79.38 kg

DRUGS (3)
  1. TRIMETHOPRIM+SULFAMETHOXAZOLE [Suspect]
     Indication: URINARY TRACT INFECTION
     Dates: start: 2013, end: 2013
  2. ZYVOX [Suspect]
     Indication: URINARY TRACT INFECTION
     Dosage: 600 MG, 2 IN 1 D
     Route: 048
     Dates: start: 201310, end: 20131105
  3. PERCOCET [Suspect]
     Indication: DEPRESSION

REACTIONS (8)
  - Nervousness [None]
  - Hypersensitivity [None]
  - Off label use [None]
  - Headache [None]
  - Glossodynia [None]
  - Abdominal pain upper [None]
  - Decreased appetite [None]
  - Dry mouth [None]
